FAERS Safety Report 4897747-X (Version None)
Quarter: 2006Q1

REPORT INFORMATION
  Report Type: 
  Country: None (occurrence: None)
  Receive Date: 20060130
  Receipt Date: 20060117
  Transmission Date: 20060701
  Serious: Yes (Hospitalization)
  Sender: FDA-Public Use
  Company Number: 220985

PATIENT
  Age: 68 Year
  Sex: Male

DRUGS (11)
  1. RAPTIVA [Suspect]
     Indication: PSORIASIS
     Dosage: 125 MG, 1/WEEK
     Dates: start: 20050923, end: 20060107
  2. ISONIAZID [Concomitant]
  3. PYRAZINAMIDE [Concomitant]
  4. VITAMIN B6 [Concomitant]
  5. PRILOSEC [Concomitant]
  6. PROPULSIDE (CISAPRIDE) [Concomitant]
  7. CARDURA [Concomitant]
  8. PREVACID [Concomitant]
  9. DIAVAN (DIETARY SUPPLEMENT) (ASCORBIC ACID, CHROMIUM NOS, SELENIUM NOS [Concomitant]
  10. FOLIC ACID [Concomitant]
  11. NEURONTIN [Concomitant]

REACTIONS (8)
  - ANOREXIA [None]
  - CHILLS [None]
  - HOT FLUSH [None]
  - INTERSTITIAL LUNG DISEASE [None]
  - LUNG INFILTRATION [None]
  - PULMONARY FIBROSIS [None]
  - PYREXIA [None]
  - WEIGHT DECREASED [None]
